FAERS Safety Report 5472630-X (Version None)
Quarter: 2007Q3

REPORT INFORMATION
  Report Type: 
  Country: None (occurrence: None)
  Receive Date: 20070926
  Receipt Date: 20070913
  Transmission Date: 20080115
  Serious: Yes (Other)
  Sender: FDA-Public Use
  Company Number: S07-CAN-05149-01

PATIENT
  Sex: Female

DRUGS (17)
  1. CELEXA [Suspect]
     Dosage: 30 MG QD PO
     Route: 048
  2. COUMADIN [Suspect]
  3. BRIMONIDINE TARTRATE [Concomitant]
  4. CALCITE (CALCIUM CARBONATE) [Concomitant]
  5. FERROUS SULFATE TAB [Concomitant]
  6. FOLIC ACID [Concomitant]
  7. LASIX [Concomitant]
  8. LUMIGAN [Concomitant]
  9. MICRO-K (POTASSIUM CHLORIDE) [Concomitant]
  10. NEXIUM [Concomitant]
  11. SIMVASTATIN [Concomitant]
  12. SYNTHROID [Concomitant]
  13. VITAMIN B-12 [Concomitant]
  14. VITAMIN B6 [Concomitant]
  15. VITAMIN D [Concomitant]
  16. ZOPICLONE [Concomitant]
  17. ZYPREXA [Concomitant]

REACTIONS (1)
  - GASTRIC HAEMORRHAGE [None]
